FAERS Safety Report 8820770 (Version 2)
Quarter: 2012Q4

REPORT INFORMATION
  Report Type: 
  Country: US (occurrence: US)
  Receive Date: 20121002
  Receipt Date: 20121002
  Transmission Date: 20130627
  Serious: Yes (Other)
  Sender: FDA-Public Use
  Company Number: US-JNJFOC-20120910983

PATIENT
  Sex: Female
  Weight: 78.47 kg

DRUGS (12)
  1. LEVAQUIN [Suspect]
     Indication: INFECTION
     Dosage: began using on an unspecified date in 2009 or 2010
     Route: 065
  2. DIAZEPAM [Concomitant]
     Indication: MUSCLE RELAXANT THERAPY
     Route: 065
  3. FOLIC ACID [Concomitant]
     Indication: PRODUCT USED FOR UNKNOWN INDICATION
     Route: 065
  4. ALLOPURINOL [Concomitant]
     Indication: GOUT
     Route: 065
  5. ASPIRIN [Concomitant]
     Indication: BLOOD PRESSURE
     Route: 048
  6. CYMBALTA [Concomitant]
     Indication: DEPRESSION
     Route: 065
  7. CYMBALTA [Concomitant]
     Indication: PAIN
     Route: 065
  8. LOVASTATIN [Concomitant]
     Indication: BLOOD CHOLESTEROL
     Route: 065
  9. NABUMETONE [Concomitant]
     Indication: ARTHRITIS
     Route: 065
  10. TRAZODONE [Concomitant]
     Indication: SLEEP DISORDER
     Route: 065
  11. FLOVENT [Concomitant]
     Indication: ASTHMA
     Route: 055
  12. PROAIR HFA [Concomitant]
     Indication: ASTHMA
     Route: 065

REACTIONS (5)
  - Paranoia [Recovered/Resolved]
  - Mental impairment [Recovered/Resolved]
  - Tremor [Recovered/Resolved]
  - Pain [Unknown]
  - Adverse event [Unknown]
